FAERS Safety Report 4816287-7 (Version None)
Quarter: 2005Q4

REPORT INFORMATION
  Report Type: 
  Country: None (occurrence: None)
  Receive Date: 20051028
  Receipt Date: 20051018
  Transmission Date: 20060501
  Serious: Yes (Hospitalization)
  Sender: FDA-Public Use
  Company Number: 2005-04045

PATIENT
  Age: 70 Year
  Sex: Female

DRUGS (1)
  1. CEFUROXIME SODIUM (WATSON LABORATORIES) (CEFUROXIME SODIUM) INJECTION, [Suspect]
     Indication: FEMALE GENITAL OPERATION
     Dosage: 750 MG, SINGLE, INTRAVENOUS
     Route: 042

REACTIONS (2)
  - ARTERIOSPASM CORONARY [None]
  - DRUG HYPERSENSITIVITY [None]
